FAERS Safety Report 19515681 (Version 1)
Quarter: 2021Q3

REPORT INFORMATION
  Report Type: Spontaneous
  Country: US (occurrence: US)
  Receive Date: 20210709
  Receipt Date: 20210709
  Transmission Date: 20211014
  Serious: No
  Sender: FDA-Public Use
  Company Number: US-ASTELLAS-2020US025439

PATIENT
  Age: 59 Year
  Sex: Male

DRUGS (1)
  1. MYRBETRIQ [Suspect]
     Active Substance: MIRABEGRON
     Indication: PROSTATIC DISORDER
     Route: 048
     Dates: start: 20200722

REACTIONS (6)
  - Dehydration [Unknown]
  - Pollakiuria [Unknown]
  - Product use in unapproved indication [Unknown]
  - Thirst [Unknown]
  - Pruritus [Unknown]
  - Dry mouth [Unknown]

NARRATIVE: CASE EVENT DATE: 202007
